FAERS Safety Report 14603767 (Version 1)
Quarter: 2018Q1

REPORT INFORMATION
  Report Type: Spontaneous
  Country: IT (occurrence: IT)
  Receive Date: 20180306
  Receipt Date: 20180306
  Transmission Date: 20180509
  Serious: Yes (Other)
  Sender: FDA-Public Use
  Company Number: IT-PFIZER INC-2017363995

PATIENT
  Age: 28 Year
  Sex: Male

DRUGS (2)
  1. PARACETAMOL [Interacting]
     Active Substance: ACETAMINOPHEN
     Dosage: 6 G, TOTAL
     Route: 048
     Dates: start: 20170409, end: 20170409
  2. XANAX [Suspect]
     Active Substance: ALPRAZOLAM
     Dosage: 3 MG, TOTAL
     Route: 048
     Dates: start: 20170409, end: 20170409

REACTIONS (4)
  - Overdose [Recovered/Resolved]
  - Drug abuse [Recovered/Resolved]
  - Alcohol interaction [Recovered/Resolved]
  - Alcohol abuse [Recovered/Resolved]

NARRATIVE: CASE EVENT DATE: 20170409
